FAERS Safety Report 4307056-5 (Version None)
Quarter: 2004Q1

REPORT INFORMATION
  Report Type: 
  Country: None (occurrence: None)
  Receive Date: 20040226
  Receipt Date: 20040226
  Transmission Date: 20041129
  Serious: Yes (Hospitalization)
  Sender: FDA-Public Use
  Company Number: None

PATIENT
  Age: 39 Year
  Sex: Male

DRUGS (7)
  1. ZYPREXA [Suspect]
     Indication: SCHIZOPHRENIA
     Dosage: 25 MG PO HS
     Route: 048
     Dates: start: 20031104, end: 20040122
  2. FLUPHENAZINE [Concomitant]
  3. FLUPHENAZINE DECANOATE [Concomitant]
  4. LITHIUM [Concomitant]
  5. LISINOPRIL [Concomitant]
  6. MULTIVITAMIN [Concomitant]
  7. ASPIRIN [Concomitant]

REACTIONS (5)
  - BLOOD CHOLESTEROL INCREASED [None]
  - BLOOD GLUCOSE INCREASED [None]
  - BLOOD TRIGLYCERIDES INCREASED [None]
  - POLYDIPSIA [None]
  - POLYURIA [None]
